FAERS Safety Report 14110861 (Version 1)
Quarter: 2017Q4

REPORT INFORMATION
  Report Type: Spontaneous
  Country: CO (occurrence: CO)
  Receive Date: 20171020
  Receipt Date: 20171020
  Transmission Date: 20180321
  Serious: Yes (Other)
  Sender: FDA-Public Use
  Company Number: CO-JNJFOC-20171016539

PATIENT
  Age: 77 Year
  Sex: Male

DRUGS (2)
  1. XARELTO [Suspect]
     Active Substance: RIVAROXABAN
     Indication: ATRIAL FIBRILLATION
     Route: 048
  2. CARDIO ASPIRINA [Concomitant]
     Dosage: DOSAGE: 81 MG EVERY OTHER DAY.
     Route: 065

REACTIONS (6)
  - Pain in extremity [Unknown]
  - Fall [Unknown]
  - Localised oedema [Unknown]
  - Joint effusion [Unknown]
  - Oedema peripheral [Recovering/Resolving]
  - Muscle haemorrhage [Unknown]

NARRATIVE: CASE EVENT DATE: 201707
